FAERS Safety Report 20732477 (Version 1)
Quarter: 2022Q2

REPORT INFORMATION
  Report Type: Spontaneous
  Country: US (occurrence: US)
  Receive Date: 20220420
  Receipt Date: 20220420
  Transmission Date: 20220721
  Serious: No
  Sender: FDA-Public Use
  Company Number: US-PFIZER INC-2017318800

PATIENT
  Age: 64 Year
  Sex: Female
  Weight: 73.923 kg

DRUGS (10)
  1. XELJANZ [Suspect]
     Active Substance: TOFACITINIB CITRATE
     Indication: Rheumatoid arthritis
     Dosage: 5 MG, 2X/DAY
     Route: 048
     Dates: start: 201109
  2. TOZINAMERAN [Concomitant]
     Active Substance: TOZINAMERAN
     Dosage: UNK
  3. LEVOTHYROXINE [Concomitant]
     Active Substance: LEVOTHYROXINE
     Dosage: 125 UG
  4. TOCOPHEROL [Concomitant]
     Active Substance: TOCOPHEROL
     Dosage: 1000 IU
  5. VITAMIN B12 [Concomitant]
     Active Substance: CYANOCOBALAMIN
     Dosage: 1000 UG
  6. MELOXICAM [Concomitant]
     Active Substance: MELOXICAM
     Dosage: 7.5 MG
  7. GLUCOSAMINE + CHONDROITIN + MSM [Concomitant]
     Dosage: UNK
  8. FISH OIL [Concomitant]
     Active Substance: FISH OIL
     Dosage: 100- 160 MG CAPSULE
  9. CALCIUM ASCORBATE [Concomitant]
     Active Substance: CALCIUM ASCORBATE
     Dosage: 250 MG
  10. ZINC [Concomitant]
     Active Substance: ZINC
     Dosage: 66 MG

REACTIONS (1)
  - Blood cholesterol increased [Unknown]
